FAERS Safety Report 16287216 (Version 1)
Quarter: 2019Q2

REPORT INFORMATION
  Report Type: Report from Study
  Country: MX (occurrence: MX)
  Receive Date: 20190508
  Receipt Date: 20190508
  Transmission Date: 20190711
  Serious: Yes (Death, Other)
  Sender: FDA-Public Use
  Company Number: PHHY2019MX104821

PATIENT
  Sex: Male

DRUGS (1)
  1. XILIARXS-DUO [Suspect]
     Active Substance: METFORMIN HYDROCHLORIDE\VILDAGLIPTIN
     Indication: DIABETES MELLITUS
     Dosage: 1 DF, Q12H (850 MG METFORMIN, 50 MG VILDAGLIPTIN)
     Route: 048
     Dates: start: 2017

REACTIONS (4)
  - Diabetic coma [Fatal]
  - Diabetes mellitus inadequate control [Unknown]
  - Weight decreased [Unknown]
  - Blood glucose fluctuation [Unknown]

NARRATIVE: CASE EVENT DATE: 20190409
